FAERS Safety Report 5259857-7 (Version None)
Quarter: 2007Q1

REPORT INFORMATION
  Report Type: 
  Country: None (occurrence: None)
  Receive Date: 20070309
  Receipt Date: 20070228
  Transmission Date: 20070707
  Serious: Yes (Other)
  Sender: FDA-Public Use
  Company Number: DE-AVENTIS-200613764DE

PATIENT
  Age: 71 Year
  Sex: Female
  Weight: 50 kg

DRUGS (12)
  1. TAVANIC [Suspect]
     Route: 048
     Dates: start: 20061001, end: 20061012
  2. DOCETAXEL [Suspect]
     Route: 042
     Dates: start: 20060928, end: 20060928
  3. FORTECORTIN                        /00016001/ [Suspect]
     Indication: PREMEDICATION
     Dates: start: 20060927, end: 20060929
  4. NEUPOGEN [Suspect]
     Dosage: DOSE: 1-0-0; DAILY DOSE UNIT: MEGAUNITS
     Route: 058
     Dates: start: 20061004, end: 20061006
  5. NAVOBAN [Concomitant]
     Indication: PREMEDICATION
     Route: 042
     Dates: start: 20060928, end: 20060928
  6. TAVEGIL                            /00137201/ [Concomitant]
     Indication: PREMEDICATION
     Route: 042
     Dates: start: 20060928, end: 20060928
  7. RANITIDINE HCL [Concomitant]
     Indication: PREMEDICATION
     Route: 042
     Dates: start: 20060928, end: 20060928
  8. ASPIRIN [Concomitant]
     Dosage: DOSE: 1-0-0
  9. SORTIS                             /01326101/ [Concomitant]
     Dosage: DOSE: 0-0-1
  10. BLOPRESS [Concomitant]
     Dosage: DOSE: 0.5-0-0
  11. BELOC                              /00376903/ [Concomitant]
     Dosage: DOSE: 0.5-0-0
  12. FLURAZEPAM HCL [Concomitant]
     Dosage: DOSE: 0-0-1

REACTIONS (1)
  - TENDON RUPTURE [None]
